FAERS Safety Report 4979392-0 (Version None)
Quarter: 2006Q2

REPORT INFORMATION
  Report Type: 
  Country: None (occurrence: None)
  Receive Date: 20060421
  Receipt Date: 20050112
  Transmission Date: 20061013
  Serious: Yes (Hospitalization)
  Sender: FDA-Public Use
  Company Number: US-MERCK-0501USA01881

PATIENT
  Age: 50 Year
  Sex: Male
  Weight: 67 kg

DRUGS (3)
  1. VIOXX [Suspect]
     Indication: CARDIAC DISORDER
     Route: 048
     Dates: start: 19990922, end: 20010401
  2. TYLENOL W/ CODEINE [Concomitant]
     Route: 065
  3. ASPIRIN [Concomitant]
     Route: 065

REACTIONS (33)
  - ABDOMINAL PAIN [None]
  - ACCIDENTAL OVERDOSE [None]
  - ACUTE MYOCARDIAL INFARCTION [None]
  - ANGINA PECTORIS [None]
  - ANGINA UNSTABLE [None]
  - ANXIETY [None]
  - AORTIC ANEURYSM [None]
  - BLADDER CANCER [None]
  - CARBON MONOXIDE POISONING [None]
  - CEREBRAL INFARCTION [None]
  - CERVICAL SPINAL STENOSIS [None]
  - CHEST PAIN [None]
  - CORONARY ARTERY DISEASE [None]
  - DEPRESSION [None]
  - DRUG TOXICITY [None]
  - HYPERTENSION [None]
  - HYPOVOLAEMIA [None]
  - IRRITABLE BOWEL SYNDROME [None]
  - METABOLIC ACIDOSIS [None]
  - MYOCARDIAL INFARCTION [None]
  - NEUROPATHY [None]
  - PANIC ATTACK [None]
  - PNEUMONIA [None]
  - RENAL VESSEL DISORDER [None]
  - RENOVASCULAR HYPERTENSION [None]
  - RESPIRATORY ACIDOSIS [None]
  - RHABDOMYOLYSIS [None]
  - SEDATION [None]
  - SEPSIS [None]
  - SHOCK [None]
  - STAPHYLOCOCCAL SEPSIS [None]
  - URINARY TRACT INFECTION [None]
  - VENTRICULAR DYSFUNCTION [None]
